FAERS Safety Report 9842926 (Version 1)
Quarter: 2014Q1

REPORT INFORMATION
  Report Type: Spontaneous
  Country: US (occurrence: US)
  Receive Date: 20140124
  Receipt Date: 20140124
  Transmission Date: 20141002
  Serious: Yes (Disabling, Other)
  Sender: FDA-Public Use
  Company Number: US-TEVA-457751USA

PATIENT
  Sex: Female
  Weight: 61.29 kg

DRUGS (1)
  1. MEDROXYPROGESTERONE [Suspect]
     Indication: ENDOMETRIOSIS
     Dosage: 30 MILLIGRAM DAILY;

REACTIONS (6)
  - Haemorrhage [Recovered/Resolved]
  - Adverse event [Unknown]
  - Pain [Recovered/Resolved]
  - Headache [Recovered/Resolved]
  - Muscle spasms [Recovered/Resolved]
  - Drug ineffective [Unknown]
